FAERS Safety Report 5375585-1 (Version None)
Quarter: 2007Q2

REPORT INFORMATION
  Report Type: 
  Country: None (occurrence: None)
  Receive Date: 20070629
  Receipt Date: 20070619
  Transmission Date: 20071010
  Serious: Yes (Other)
  Sender: FDA-Public Use
  Company Number: GR-PFIZER INC-2007051473

PATIENT
  Age: 67 Year
  Sex: Female
  Weight: 58 kg

DRUGS (3)
  1. CLINDAMYCIN HCL [Suspect]
     Indication: CHRONIC SINUSITIS
     Route: 048
     Dates: start: 20070511, end: 20070518
  2. RONAL [Concomitant]
  3. LOSEC [Concomitant]

REACTIONS (3)
  - PRURITUS [None]
  - PYREXIA [None]
  - RASH MORBILLIFORM [None]
